FAERS Safety Report 16908312 (Version 1)
Quarter: 2019Q4

REPORT INFORMATION
  Report Type: Spontaneous
  Country: US (occurrence: US)
  Receive Date: 20191011
  Receipt Date: 20191011
  Transmission Date: 20200122
  Serious: Yes (Other)
  Sender: FDA-Public Use
  Company Number: US-ASTRAZENECA-2019SF27879

PATIENT
  Sex: Female

DRUGS (1)
  1. BYDUREON [Suspect]
     Active Substance: EXENATIDE
     Route: 065

REACTIONS (10)
  - Thyroid neoplasm [Unknown]
  - Blood glucose abnormal [Unknown]
  - Nausea [Unknown]
  - Malaise [Unknown]
  - Pancreatitis [Unknown]
  - Weight decreased [Unknown]
  - Dizziness [Unknown]
  - Decreased appetite [Unknown]
  - Influenza like illness [Unknown]
  - Feeling abnormal [Unknown]
